FAERS Safety Report 4538573-0 (Version None)
Quarter: 2004Q4

REPORT INFORMATION
  Report Type: 
  Country: None (occurrence: None)
  Receive Date: 20041222
  Receipt Date: 20041208
  Transmission Date: 20050328
  Serious: Yes (Hospitalization)
  Sender: FDA-Public Use
  Company Number: D01200300681

PATIENT
  Age: 61 Year
  Sex: Male

DRUGS (16)
  1. OXALIPLATIN - SOLUTION - 85 MG/M2 [Suspect]
     Dosage: 165 MG Q2W
     Route: 042
     Dates: start: 20030429, end: 20030429
  2. FLUOROURACIL [Suspect]
     Dosage: 800 MG (400 MG/M2 AS IV BOLUS) THEN 1175 MG (600 MG/M2 AS 22 HOURS CONTINUOUS INFUSION) D1-D2 Q2W
     Route: 042
     Dates: start: 20030429, end: 20030430
  3. SR54476 OR PLACEBO - CAPSULE - 1 M G [Suspect]
     Indication: CHEMOTHERAPY NEUROTOXICITY ATTENUATION
     Dosage: 800 MG (400 MG/M2 AS IV BOLUS) THEN 1175 MG (600 MG/M2 AS 22 HOURS CONTINUOUS INFUSION) D1-D2 Q2W
     Dates: start: 20030217, end: 20030508
  4. SR54476 OR PLACEBO - CAPSULE - 1 M G [Suspect]
     Indication: COLORECTAL CANCER METASTATIC
     Dosage: 800 MG (400 MG/M2 AS IV BOLUS) THEN 1175 MG (600 MG/M2 AS 22 HOURS CONTINUOUS INFUSION) D1-D2 Q2W
     Dates: start: 20030217, end: 20030508
  5. LEUCOVORIN CALCIUM [Suspect]
     Dosage: 400 MG AS 2 HOURS INFUSION ON D1-D2 Q2W
     Route: 042
     Dates: start: 20030429, end: 20030419
  6. MERBENTYL (DICYCLOVERINE HYDROCHLORIDE) [Concomitant]
  7. MEXALON (METOCLOPRAMIDE HYDROCHLORIDE) [Concomitant]
  8. OMEPRAZOLE [Concomitant]
  9. CODANTHRUSATE [Concomitant]
  10. DICLOFENAC SODIUM [Concomitant]
  11. MORPHINE SULFATE [Concomitant]
  12. SEVREDOL (MORPHINE SULFATE) [Concomitant]
  13. DICLOFENAC SODIUM [Concomitant]
  14. GRANISETRON [Concomitant]
  15. DEXAMETHASONE [Concomitant]
  16. DOMPERIDONE [Concomitant]

REACTIONS (4)
  - CHEST PAIN [None]
  - HAEMOPTYSIS [None]
  - LOWER RESPIRATORY TRACT INFECTION [None]
  - OXYGEN SATURATION DECREASED [None]
